FAERS Safety Report 14241040 (Version 1)
Quarter: 2017Q4

REPORT INFORMATION
  Report Type: Spontaneous
  Country: US (occurrence: US)
  Receive Date: 20171130
  Receipt Date: 20171130
  Transmission Date: 20180321
  Serious: No
  Sender: FDA-Public Use
  Company Number: US-LEADIANT BIOSCIENCES INC-2017STPI000358

PATIENT
  Sex: Female

DRUGS (6)
  1. ONDANSETRON [Concomitant]
     Active Substance: ONDANSETRON
  2. LOMUSTINE. [Concomitant]
     Active Substance: LOMUSTINE
  3. BENADRYL [Concomitant]
     Active Substance: DIPHENHYDRAMINE HYDROCHLORIDE
  4. MATULANE [Suspect]
     Active Substance: PROCARBAZINE HYDROCHLORIDE
     Indication: BRAIN NEOPLASM MALIGNANT
     Dosage: 100 MG, DAILY
     Route: 048
     Dates: start: 20160913
  5. MULTIVITAMIN                       /00097801/ [Concomitant]
     Active Substance: VITAMINS
  6. ZYRTEC [Concomitant]
     Active Substance: CETIRIZINE HYDROCHLORIDE

REACTIONS (2)
  - Decreased appetite [Not Recovered/Not Resolved]
  - Nausea [Not Recovered/Not Resolved]
